FAERS Safety Report 7238100-3 (Version None)
Quarter: 2011Q1

REPORT INFORMATION
  Report Type: 
  Country: None (occurrence: None)
  Receive Date: 20110119
  Receipt Date: 20110119
  Transmission Date: 20110831
  Serious: No
  Sender: FDA-Public Use
  Company Number: None

PATIENT
  Age: 72 Year
  Sex: Female
  Weight: 61.2356 kg

DRUGS (1)
  1. TRIAD ALCOHOL PREP PADS N.A. TRIAD GROUP [Suspect]

REACTIONS (4)
  - VOMITING [None]
  - DYSPEPSIA [None]
  - NAUSEA [None]
  - ASTHENIA [None]
